FAERS Safety Report 8986604 (Version 1)
Quarter: 2012Q4

REPORT INFORMATION
  Report Type: Report from Study
  Country: JP (occurrence: JP)
  Receive Date: 20121226
  Receipt Date: 20121226
  Transmission Date: 20130627
  Serious: Yes (Life-Threatening, Other)
  Sender: FDA-Public Use
  Company Number: JP-ROCHE-1173620

PATIENT
  Age: 35 Year
  Sex: Male

DRUGS (13)
  1. VALGANCICLOVIR [Suspect]
     Indication: CYTOMEGALOVIRUS INFECTION
     Route: 048
     Dates: start: 20090528, end: 20090528
  2. VALGANCICLOVIR [Suspect]
     Indication: ORGAN TRANSPLANT
     Route: 048
     Dates: start: 20090529, end: 20090618
  3. FUNGUARD [Suspect]
     Indication: PROPHYLAXIS
     Route: 042
     Dates: start: 20090512
  4. OMEPRAL [Suspect]
     Indication: PROPHYLAXIS
     Route: 042
     Dates: start: 20090512
  5. UNASYN [Suspect]
     Indication: PROPHYLAXIS
     Route: 042
     Dates: start: 20090522, end: 20090530
  6. BARACLUDE [Concomitant]
     Route: 048
     Dates: start: 20090512
  7. GENTACIN [Concomitant]
     Route: 042
     Dates: start: 20090603
  8. VANCOMYCIN [Concomitant]
     Route: 042
     Dates: start: 20090604, end: 20090606
  9. ZOSYN [Concomitant]
     Route: 042
     Dates: start: 20090604, end: 20090610
  10. MODACIN [Concomitant]
     Route: 065
     Dates: start: 20090610
  11. PROGRAF [Concomitant]
     Route: 048
  12. CELLCEPT [Concomitant]
     Route: 048
  13. PREDONINE [Concomitant]
     Route: 048

REACTIONS (2)
  - Pneumonia pseudomonas aeruginosa [Recovering/Resolving]
  - White blood cell count decreased [Recovered/Resolved]
